FAERS Safety Report 13450506 (Version 2)
Quarter: 2017Q3

REPORT INFORMATION
  Report Type: Spontaneous
  Country: JP (occurrence: JP)
  Receive Date: 20170418
  Receipt Date: 20170913
  Transmission Date: 20171127
  Serious: Yes (Hospitalization, Other)
  Sender: FDA-Public Use
  Company Number: JP-ASTRAZENECA-2017SE39808

PATIENT
  Age: 65 Year
  Sex: Male
  Weight: 73 kg

DRUGS (4)
  1. FORXIGA [Suspect]
     Active Substance: DAPAGLIFLOZIN
     Indication: TYPE 2 DIABETES MELLITUS
     Route: 048
     Dates: start: 20170130, end: 20170410
  2. AMLODIPINE [Concomitant]
     Active Substance: AMLODIPINE BESYLATE
     Indication: HYPERTENSION
     Route: 048
     Dates: end: 20170410
  3. C-CYSTEN [Concomitant]
     Active Substance: CARBOCYSTEINE
     Route: 048
     Dates: start: 201611
  4. CRESTOR [Concomitant]
     Active Substance: ROSUVASTATIN CALCIUM
     Indication: DYSLIPIDAEMIA
     Route: 048

REACTIONS (1)
  - Brain stem infarction [Recovering/Resolving]

NARRATIVE: CASE EVENT DATE: 20170408
